FAERS Safety Report 5897553-3 (Version None)
Quarter: 2008Q3

REPORT INFORMATION
  Report Type: 
  Country: None (occurrence: None)
  Receive Date: 20080925
  Receipt Date: 20080917
  Transmission Date: 20090109
  Serious: Yes (Other)
  Sender: FDA-Public Use
  Company Number: FR-BAYER-200826667GPV

PATIENT
  Age: 64 Year
  Sex: Male
  Weight: 67 kg

DRUGS (15)
  1. NEXAVAR [Suspect]
     Indication: RENAL CELL CARCINOMA
     Route: 048
     Dates: start: 20080320, end: 20080417
  2. NEXAVAR [Suspect]
     Route: 048
     Dates: start: 20080417, end: 20080515
  3. NEXAVAR [Suspect]
     Route: 048
     Dates: start: 20080515
  4. AMLOD [Concomitant]
     Indication: HYPERTENSION
     Route: 048
     Dates: start: 20080416
  5. IMODIUM [Concomitant]
     Indication: DIARRHOEA
     Route: 048
     Dates: start: 20080401
  6. LEVOTHYROX [Concomitant]
     Indication: THYROID DISORDER
     Route: 048
     Dates: start: 20080416
  7. PROPOXYPHENE HCL AND ACETAMINOPHEN [Concomitant]
     Indication: SCIATICA
     Route: 048
     Dates: start: 20080301
  8. ACETAMINOPHEN [Concomitant]
     Indication: SCIATICA
     Route: 048
     Dates: start: 20080301
  9. LOPERAMIDE HCL [Concomitant]
     Indication: DIARRHOEA
     Route: 048
     Dates: start: 20080401
  10. MYOLASTAN [Concomitant]
     Indication: SCIATICA
     Route: 048
     Dates: start: 20080521
  11. DEXERYL [Concomitant]
     Indication: PALMAR-PLANTAR ERYTHRODYSAESTHESIA SYNDROME
     Route: 003
     Dates: start: 20080715
  12. DEXERYL [Concomitant]
     Route: 003
     Dates: start: 20080401, end: 20080701
  13. SMECTA [Concomitant]
     Indication: DIARRHOEA
     Route: 048
     Dates: start: 20080612
  14. TIORFAN [Concomitant]
     Indication: DIARRHOEA
     Route: 065
     Dates: start: 20080715
  15. ACETAMINOPHEN AND CODEINE PHOSPHATE [Concomitant]
     Indication: DIARRHOEA
     Route: 048
     Dates: start: 20080715

REACTIONS (1)
  - EJECTION FRACTION DECREASED [None]
